FAERS Safety Report 12917227 (Version 1)
Quarter: 2016Q4

REPORT INFORMATION
  Report Type: Spontaneous
  Country: US (occurrence: US)
  Receive Date: 20161107
  Receipt Date: 20161107
  Transmission Date: 20170207
  Serious: No
  Sender: FDA-Public Use
  Company Number: US-JAZZ-2016-US-017531

PATIENT
  Sex: Female

DRUGS (12)
  1. ALLEGRA [Concomitant]
     Active Substance: FEXOFENADINE HYDROCHLORIDE
  2. PROAIR HFA [Concomitant]
     Active Substance: ALBUTEROL SULFATE
  3. MIRALAX [Concomitant]
     Active Substance: POLYETHYLENE GLYCOL 3350
  4. ALEVE [Concomitant]
     Active Substance: NAPROXEN SODIUM
  5. MULTIVITAMINS [Concomitant]
     Active Substance: VITAMINS
  6. SEROQUEL [Concomitant]
     Active Substance: QUETIAPINE FUMARATE
  7. XYREM [Suspect]
     Active Substance: SODIUM OXYBATE
     Indication: NARCOLEPSY
     Dosage: 2.25 G, BID
     Route: 048
     Dates: start: 201410, end: 201411
  8. XYREM [Suspect]
     Active Substance: SODIUM OXYBATE
     Dosage: 1.5 G, BID
     Route: 048
     Dates: start: 201511
  9. FLONASE ALLERGY RLF [Concomitant]
  10. XYREM [Suspect]
     Active Substance: SODIUM OXYBATE
     Indication: CATAPLEXY
     Dosage: DOSE ADJUSTMENTS
     Route: 048
     Dates: start: 201411, end: 201511
  11. PROVIGIL [Concomitant]
     Active Substance: MODAFINIL
  12. PROTONIX DR [Concomitant]

REACTIONS (2)
  - Arthropod sting [Unknown]
  - Allergy to arthropod sting [Not Recovered/Not Resolved]

NARRATIVE: CASE EVENT DATE: 2016
